FAERS Safety Report 19511031 (Version 3)
Quarter: 2021Q3

REPORT INFORMATION
  Report Type: Spontaneous
  Country: US (occurrence: US)
  Receive Date: 20210709
  Receipt Date: 20210722
  Transmission Date: 20211014
  Serious: Yes (Other)
  Sender: FDA-Public Use
  Company Number: US-GLAXOSMITHKLINE-US2019223005

PATIENT
  Sex: Female

DRUGS (3)
  1. BIOTENE NOS [Suspect]
     Active Substance: CETYLPYRIDINIUM CHLORIDE OR SODIUM FLUORIDE OR SODIUM MONOFLUOROPHOSPHATE OR GLUCOSE OXIDASE\LACTOFERRIN\LACTOPEROXIDASE BOVINE\LYSOZYME
     Indication: DRY MOUTH
     Dosage: UNK
  2. BIOTENE FRESH MINT ORIGINAL (SODIUM FLUORIDE) [Suspect]
     Active Substance: SODIUM FLUORIDE
     Indication: DRY MOUTH
     Dosage: UNK
  3. BIOTENE NOS [Suspect]
     Active Substance: CETYLPYRIDINIUM CHLORIDE OR SODIUM FLUORIDE OR SODIUM MONOFLUOROPHOSPHATE OR GLUCOSE OXIDASE\LACTOFERRIN\LACTOPEROXIDASE BOVINE\LYSOZYME
     Indication: DRY MOUTH
     Dosage: UNK

REACTIONS (13)
  - Tooth disorder [Unknown]
  - Choking [Unknown]
  - Adverse reaction [Unknown]
  - Product use in unapproved indication [Unknown]
  - Endodontic procedure [Unknown]
  - Foreign body in throat [Unknown]
  - Oropharyngeal plaque [Not Recovered/Not Resolved]
  - Dental caries [Unknown]
  - Anxiety [Unknown]
  - Product residue present [Unknown]
  - Loose tooth [Unknown]
  - Ill-defined disorder [Unknown]
  - Product complaint [Unknown]
